FAERS Safety Report 10757546 (Version 1)
Quarter: 2015Q1

REPORT INFORMATION
  Report Type: Spontaneous
  Country: US (occurrence: None)
  Receive Date: 20150202
  Receipt Date: 20150202
  Transmission Date: 20150721
  Serious: Yes (Hospitalization, Other)
  Sender: FDA-Public Use
  Company Number: None

PATIENT
  Age: 77 Year
  Sex: Male
  Weight: 72.58 kg

DRUGS (1)
  1. TAZICEF [Suspect]
     Active Substance: CEFTAZIDIME
     Indication: KIDNEY INFECTION
     Dosage: 2 TWICE DAILY
     Route: 030
     Dates: start: 20150122, end: 20150129

REACTIONS (3)
  - Dyspnoea [None]
  - Malaise [None]
  - Staphylococcal infection [None]

NARRATIVE: CASE EVENT DATE: 20150131
